FAERS Safety Report 14967221 (Version 1)
Quarter: 2018Q2

REPORT INFORMATION
  Report Type: Spontaneous
  Country: JP (occurrence: JP)
  Receive Date: 20180604
  Receipt Date: 20180604
  Transmission Date: 20180711
  Serious: Yes (Other)
  Sender: FDA-Public Use
  Company Number: JP-CHEPLA-C20170266

PATIENT
  Age: 31 Year
  Sex: Male

DRUGS (5)
  1. BAKTAR [Concomitant]
     Active Substance: SULFAMETHOXAZOLE\TRIMETHOPRIM
     Dosage: 1 WEEK AFTER INITIAL ADMINISTRATION OF VESANOID TO UNKNOWN
  2. ALOSITOL [Concomitant]
     Active Substance: ALLOPURINOL
     Dosage: 3 DAYS AFTER INITIAL ADMINISTRATION OF VESANOID TO UNKNOWN
  3. VESANOID [Suspect]
     Active Substance: TRETINOIN
     Indication: ACUTE PROMYELOCYTIC LEUKAEMIA
     Route: 048
     Dates: start: 20170419
  4. FLUCONAZOLE. [Concomitant]
     Active Substance: FLUCONAZOLE
     Dosage: A FEW DAYS AFTER INITIAL ADMINISTRATION OF VESANOID TO UNKNOWN
  5. PARIET [Concomitant]
     Active Substance: RABEPRAZOLE SODIUM
     Dosage: 3 DAYS AFTER INITIAL ADMINISTRATION OF VESANOID TO UNKNOWN

REACTIONS (2)
  - Retroperitonitis [Unknown]
  - Pyrexia [Recovered/Resolved]

NARRATIVE: CASE EVENT DATE: 20170419
